FAERS Safety Report 16536462 (Version 3)
Quarter: 2019Q3

REPORT INFORMATION
  Report Type: Spontaneous
  Country: DE (occurrence: DE)
  Receive Date: 20190706
  Receipt Date: 20190716
  Transmission Date: 20191004
  Serious: Yes (Hospitalization, Other)
  Sender: FDA-Public Use
  Company Number: DE-UNITED THERAPEUTICS-UNT-2019-011337

PATIENT

DRUGS (1)
  1. REMODULIN [Suspect]
     Active Substance: TREPROSTINIL
     Indication: PULMONARY ARTERIAL HYPERTENSION
     Dosage: 0.020 ?G/KG, CONTINUING
     Route: 041
     Dates: start: 20130828

REACTIONS (9)
  - Malaise [Recovered/Resolved]
  - Respiratory failure [Unknown]
  - Dyspnoea [Recovered/Resolved]
  - Right ventricular failure [Unknown]
  - Off label use [Unknown]
  - Overdose [Unknown]
  - Flushing [Recovered/Resolved]
  - Implant site pain [Recovered/Resolved]
  - Device issue [Unknown]

NARRATIVE: CASE EVENT DATE: 20190606
